FAERS Safety Report 6977386 (Version 2)
Quarter: 2014Q1

REPORT INFORMATION
  Report Type: Spontaneous
  Country: JP (occurrence: None)
  Receive Date: 20090408
  Receipt Date: 20140102
  Transmission Date: 20141002
  Serious: Yes (Death, Life-Threatening, Other)
  Sender: FDA-Public Use
  Company Number: 2006JP004951

PATIENT
  Age: 16 Year
  Sex: Female

DRUGS (5)
  1. PROGRAF [Suspect]
     Indication: BONE MARROW TRANSPLANT
  2. METHOTREXATE [Concomitant]
  3. FLUDARABINE (FLUDARABINE) [Concomitant]
  4. MELPHALAN [Concomitant]
  5. THYMOGLOBULIN [Concomitant]

REACTIONS (10)
  - Multi-organ failure [None]
  - Bronchopulmonary aspergillosis allergic [None]
  - Thrombotic microangiopathy [None]
  - Infection [None]
  - Renal failure acute [None]
  - Acute graft versus host disease in intestine [None]
  - Cytomegalovirus enteritis [None]
  - Gastrointestinal ulcer [None]
  - Drug ineffective [None]
  - Post procedural complication [None]
